FAERS Safety Report 13121780 (Version 1)
Quarter: 2017Q1

REPORT INFORMATION
  Report Type: Spontaneous
  Country: US (occurrence: US)
  Receive Date: 20170116
  Receipt Date: 20170116
  Transmission Date: 20170428
  Serious: No
  Sender: FDA-Public Use
  Company Number: None

PATIENT
  Age: 50 Year
  Sex: Male
  Weight: 67.5 kg

DRUGS (1)
  1. NODOZ [Suspect]
     Active Substance: CAFFEINE
     Dosage: ORAL 2 CAPLET?
     Route: 048

REACTIONS (3)
  - Diarrhoea [None]
  - Abdominal pain upper [None]
  - Nausea [None]
